FAERS Safety Report 18635433 (Version 1)
Quarter: 2020Q4

REPORT INFORMATION
  Report Type: Spontaneous
  Country: US (occurrence: US)
  Receive Date: 20201218
  Receipt Date: 20201218
  Transmission Date: 20210114
  Serious: No
  Sender: FDA-Public Use
  Company Number: US-ASTRAZENECA-2020SF59471

PATIENT
  Age: 80 Year
  Sex: Female
  Weight: 59 kg

DRUGS (1)
  1. PULMICORT FLEXHALER [Suspect]
     Active Substance: BUDESONIDE
     Indication: CHRONIC OBSTRUCTIVE PULMONARY DISEASE
     Dosage: 2 PUFFS IN THE MORNING, AND 2 PUFFS AT NIGHT, START DATE 7 MONTHS AGO
     Route: 055

REACTIONS (5)
  - Malaise [Unknown]
  - Myalgia [Unknown]
  - Off label use [Unknown]
  - Blood pressure increased [Unknown]
  - Fatigue [Unknown]
